FAERS Safety Report 21969709 (Version 1)
Quarter: 2023Q1

REPORT INFORMATION
  Report Type: Spontaneous
  Country: US (occurrence: US)
  Receive Date: 20230208
  Receipt Date: 20230208
  Transmission Date: 20230417
  Serious: No
  Sender: FDA-Public Use
  Company Number: US-GILEAD-2023-0615859

PATIENT
  Age: 72 Year
  Sex: Male

DRUGS (1)
  1. RANEXA [Suspect]
     Active Substance: RANOLAZINE
     Indication: Product used for unknown indication
     Dosage: 1000 MG, BID
     Route: 065

REACTIONS (3)
  - Product dose omission issue [Recovered/Resolved]
  - Prescription drug used without a prescription [Not Recovered/Not Resolved]
  - Product supply issue [Not Recovered/Not Resolved]
